FAERS Safety Report 7578804-6 (Version None)
Quarter: 2011Q2

REPORT INFORMATION
  Report Type: 
  Country: None (occurrence: None)
  Receive Date: 20110628
  Receipt Date: 20110617
  Transmission Date: 20111010
  Serious: Yes (Death, Hospitalization)
  Sender: FDA-Public Use
  Company Number: SE-PFIZER INC-2009260340

PATIENT
  Age: 82 Year
  Sex: Male
  Weight: 75.8 kg

DRUGS (10)
  1. REPAGLINIDE [Concomitant]
     Dosage: UNK
     Dates: start: 20070612
  2. EPLERENONE [Suspect]
     Dosage: 25 MG, DAILY
     Route: 048
     Dates: start: 20090311, end: 20090622
  3. FUROSEMIDE [Concomitant]
     Dosage: UNK
     Dates: start: 20060228
  4. EPLERENONE [Suspect]
     Indication: CARDIAC FAILURE
     Dosage: 25 MG, DAILY
     Route: 048
     Dates: start: 20080130, end: 20080226
  5. ENALAPRIL [Concomitant]
     Dosage: UNK
     Route: 048
     Dates: start: 20071203
  6. WARFARIN [Concomitant]
     Dosage: UNK
     Dates: start: 20060228
  7. METOPROLOL [Concomitant]
     Dosage: UNK
     Route: 048
     Dates: start: 20060228
  8. SIMVASTATIN [Concomitant]
     Dosage: UNK
     Dates: start: 20040218
  9. EPLERENONE [Suspect]
     Dosage: 50 MG, DAILY
     Route: 048
     Dates: start: 20080227, end: 20090223
  10. EPLERENONE [Suspect]
     Dosage: 12.5 MG, DAILY
     Route: 048
     Dates: start: 20090629, end: 20090825

REACTIONS (1)
  - VENTRICULAR FIBRILLATION [None]
